FAERS Safety Report 7989643-6 (Version None)
Quarter: 2011Q4

REPORT INFORMATION
  Report Type: 
  Country: None (occurrence: None)
  Receive Date: 20111219
  Receipt Date: 20111208
  Transmission Date: 20120403
  Serious: No
  Sender: FDA-Public Use
  Company Number: US-JNJFOC-20111204552

PATIENT
  Age: 35 Year
  Sex: Male
  Weight: 102 kg

DRUGS (6)
  1. DEPAKOTE ER [Concomitant]
     Route: 048
  2. PEPCID [Concomitant]
     Route: 048
  3. BENADRYL [Concomitant]
     Dosage: EVERY 6 HOUR AS NECESSARY (6 HRS. PRN)
     Route: 048
  4. INVEGA [Concomitant]
     Route: 048
  5. INVEGA SUSTENNA [Suspect]
     Indication: SCHIZOPHRENIA
     Route: 030
     Dates: start: 20111102
  6. MULTI-VITAMINS [Concomitant]
     Route: 048

REACTIONS (1)
  - DRUG INEFFECTIVE [None]
